FAERS Safety Report 20959147 (Version 1)
Quarter: 2022Q2

REPORT INFORMATION
  Report Type: Report from Study
  Country: AR (occurrence: AR)
  Receive Date: 20220614
  Receipt Date: 20220614
  Transmission Date: 20220721
  Serious: Yes (Other)
  Sender: FDA-Public Use
  Company Number: AR-NOVARTISPH-NVSC2022AR116563

PATIENT
  Sex: Male

DRUGS (7)
  1. ENTRESTO [Suspect]
     Active Substance: SACUBITRIL\VALSARTAN
     Indication: Cardiac failure
     Dosage: 2 DOSAGE FORM(50 MG)
     Route: 065
     Dates: start: 2018, end: 2021
  2. ENTRESTO [Suspect]
     Active Substance: SACUBITRIL\VALSARTAN
     Dosage: 1 DOSAGE FORM( 100MG)
     Route: 065
     Dates: start: 2021
  3. NABILA [Concomitant]
     Indication: Cardiac disorder
     Dosage: 1 DOSAGE FORM, QD (10 MG)
     Route: 065
  4. VYTORIN [Concomitant]
     Active Substance: EZETIMIBE\SIMVASTATIN
     Indication: Infarction
     Dosage: 1 DOSAGE FORM, QD (10/40MG)
     Route: 065
  5. CLOPIDOGREL BISULFATE [Concomitant]
     Active Substance: CLOPIDOGREL BISULFATE
     Indication: Cardiac disorder
     Dosage: 1 DOSAGE FORM, QD (75 MG)
     Route: 065
  6. EUTHYROX [Concomitant]
     Active Substance: LEVOTHYROXINE SODIUM
     Indication: Thyroid disorder
     Dosage: UNK
     Route: 065
  7. REDUPROST [Concomitant]
     Indication: Prostatic disorder
     Dosage: 1 DOSAGE FORM, QD (0.4MG)
     Route: 065

REACTIONS (7)
  - Arrhythmia [Unknown]
  - Anxiety [Unknown]
  - Fear [Unknown]
  - COVID-19 [Recovered/Resolved]
  - Pyrexia [Recovered/Resolved]
  - Back pain [Recovered/Resolved]
  - Inappropriate schedule of product administration [Unknown]

NARRATIVE: CASE EVENT DATE: 20210101
